FAERS Safety Report 8185389-2 (Version None)
Quarter: 2012Q1

REPORT INFORMATION
  Report Type: 
  Country: None (occurrence: None)
  Receive Date: 20120305
  Receipt Date: 20120229
  Transmission Date: 20120608
  Serious: Yes (Disabling, Other)
  Sender: FDA-Public Use
  Company Number: PHHY2011CA16005

PATIENT
  Sex: Female

DRUGS (5)
  1. ZOLEDRONOC ACID [Suspect]
     Indication: OSTEOPOROSIS
     Dosage: 5 MG
     Route: 042
     Dates: start: 20100222
  2. EMEND [Concomitant]
     Dosage: 800 UKN, DAILY
  3. CALCIUM CITRATE [Concomitant]
  4. PANTOPRAZOLE SODIUM [Concomitant]
     Dosage: 40 MG, UNK
  5. MOTILIUM [Concomitant]

REACTIONS (7)
  - DYSSTASIA [None]
  - FALL [None]
  - ARTHRALGIA [None]
  - TIBIA FRACTURE [None]
  - LIGAMENT SPRAIN [None]
  - MALAISE [None]
  - LOWER EXTREMITY MASS [None]
